FAERS Safety Report 6189805-7 (Version None)
Quarter: 2009Q2

REPORT INFORMATION
  Report Type: 
  Country: None (occurrence: None)
  Receive Date: 20090512
  Receipt Date: 20090512
  Transmission Date: 20091009
  Serious: Yes (Death)
  Sender: FDA-Public Use
  Company Number: None

PATIENT
  Age: 40 Year
  Sex: Male
  Weight: 77.1115 kg

DRUGS (1)
  1. CHANTIX [Suspect]
     Indication: NICOTINE DEPENDENCE
     Dosage: 1MG PER DAY PO
     Route: 048
     Dates: start: 20090420, end: 20090506

REACTIONS (2)
  - ASPHYXIA [None]
  - COMPLETED SUICIDE [None]
